FAERS Safety Report 6053462-0 (Version None)
Quarter: 2009Q1

REPORT INFORMATION
  Report Type: 
  Country: None (occurrence: None)
  Receive Date: 20090127
  Receipt Date: 20080429
  Transmission Date: 20090719
  Serious: No
  Sender: FDA-Public Use
  Company Number: US-TEVA-171022USA

PATIENT
  Sex: Female

DRUGS (2)
  1. COPAXONE [Suspect]
     Indication: MULTIPLE SCLEROSIS
     Route: 058
  2. SERTRALINE [Concomitant]

REACTIONS (4)
  - CHEST DISCOMFORT [None]
  - IMMEDIATE POST-INJECTION REACTION [None]
  - PAIN [None]
  - URTICARIA [None]
